FAERS Safety Report 18080679 (Version 1)
Quarter: 2020Q3

REPORT INFORMATION
  Report Type: Other
  Country: NL (occurrence: NL)
  Receive Date: 20200728
  Receipt Date: 20200728
  Transmission Date: 20201103
  Serious: Yes (Other)
  Sender: FDA-Public Use
  Company Number: NL-GLENMARK PHARMACEUTICALS-2019GMK043942

PATIENT

DRUGS (1)
  1. GLEPARK 0,7 MG TABLETTEN [Suspect]
     Active Substance: PRAMIPEXOLE DIHYDROCHLORIDE
     Indication: UPPER MOTOR NEURONE LESION
     Dosage: 2 MG, BID (2X2 PER DAG)
     Route: 065
     Dates: start: 2009

REACTIONS (3)
  - Food craving [Recovered/Resolved with Sequelae]
  - Dependence [Recovered/Resolved with Sequelae]
  - Oedema peripheral [Recovered/Resolved with Sequelae]

NARRATIVE: CASE EVENT DATE: 2018
